FAERS Safety Report 5460681-0 (Version None)
Quarter: 2007Q3

REPORT INFORMATION
  Report Type: 
  Country: None (occurrence: None)
  Receive Date: 20070918
  Receipt Date: 20070914
  Transmission Date: 20080115
  Serious: Yes (Hospitalization)
  Sender: FDA-Public Use
  Company Number: E2020-01234-SPO-JP

PATIENT
  Age: 77 Year
  Sex: Female
  Weight: 34.8 kg

DRUGS (2)
  1. ARICEPT [Suspect]
     Indication: DEMENTIA ALZHEIMER'S TYPE
     Dosage: 5 MG, 1 IN 1 D, ORAL
     Route: 048
     Dates: start: 20060501, end: 20070517
  2. FERROMIA (FERROUS CITRATE) [Concomitant]

REACTIONS (1)
  - APLASIA PURE RED CELL [None]
